FAERS Safety Report 22234986 (Version 1)
Quarter: 2023Q2

REPORT INFORMATION
  Report Type: Spontaneous
  Country: CN (occurrence: CN)
  Receive Date: 20230420
  Receipt Date: 20230420
  Transmission Date: 20230721
  Serious: Yes (Other)
  Sender: FDA-Public Use
  Company Number: CN-009507513-2304CHN006238

PATIENT
  Age: 81 Year
  Sex: Female

DRUGS (3)
  1. CILASTATIN SODIUM\IMIPENEM [Suspect]
     Active Substance: CILASTATIN SODIUM\IMIPENEM
     Indication: Infection
     Dosage: 0.5 GRAM, BID
     Route: 041
     Dates: start: 20230404, end: 20230410
  2. DYPHYLLINE [Concomitant]
     Active Substance: DYPHYLLINE
     Dosage: UNK
     Dates: start: 202304
  3. DEXAMETHASONE [Concomitant]
     Active Substance: DEXAMETHASONE
     Dosage: UNK
     Dates: start: 202304

REACTIONS (4)
  - Epilepsy [Recovering/Resolving]
  - Haematemesis [Recovering/Resolving]
  - Oral disorder [Recovering/Resolving]
  - Mydriasis [Recovering/Resolving]

NARRATIVE: CASE EVENT DATE: 20230410
